FAERS Safety Report 23616387 (Version 1)
Quarter: 2024Q1

REPORT INFORMATION
  Report Type: Spontaneous
  Country: US (occurrence: US)
  Receive Date: 20240311
  Receipt Date: 20240311
  Transmission Date: 20240410
  Serious: Yes (Death)
  Sender: FDA-Public Use
  Company Number: US-ORG100016242-2024000083

PATIENT

DRUGS (2)
  1. BUPIVACAINE [Suspect]
     Active Substance: BUPIVACAINE
     Indication: Pain management
     Dosage: 20 ML OF 1.3% EXPAREL DILUTED WITH 20 ML 0.25% BUPIVACAINE HCL
     Route: 050
  2. BUPIVACAINE HYDROCHLORIDE [Suspect]
     Active Substance: BUPIVACAINE HYDROCHLORIDE\BUPIVACAINE HYDROCHLORIDE ANHYDROUS
     Indication: Pain management
     Dosage: 20 ML 0.25% BUPIVACAINE HCL WITH 20 ML OF 1.3% EXPAREL DILUTED
     Route: 050

REACTIONS (2)
  - Sepsis [Fatal]
  - Off label use [Unknown]
